FAERS Safety Report 11999890 (Version 1)
Quarter: 2016Q1

REPORT INFORMATION
  Report Type: Spontaneous
  Country: JP (occurrence: JP)
  Receive Date: 20160204
  Receipt Date: 20160204
  Transmission Date: 20160526
  Serious: Yes (Hospitalization, Other)
  Sender: FDA-Public Use
  Company Number: JP-ACTAVIS-2016-01575

PATIENT
  Age: 51 Year
  Sex: Female
  Weight: 52 kg

DRUGS (10)
  1. PHENYTOIN (AMALLC) [Suspect]
     Active Substance: PHENYTOIN
     Indication: SEIZURE
     Dosage: 200 MG, DAILY
     Route: 048
  2. MAGNESIUM OXIDE. [Concomitant]
     Active Substance: MAGNESIUM OXIDE
     Indication: PRODUCT USED FOR UNKNOWN INDICATION
     Dosage: 0.6 G, DAILY
     Route: 065
  3. DOXIFLURIDINE [Interacting]
     Active Substance: DOXIFLURIDINE
     Indication: BREAST CANCER RECURRENT
     Dosage: 800 MG, DAILY
     Route: 065
  4. MEDROXYPROGESTERONE ACETATE. [Interacting]
     Active Substance: MEDROXYPROGESTERONE ACETATE
     Indication: BREAST CANCER RECURRENT
     Dosage: 800 MG, DAILY
     Route: 065
  5. ALUMINIUM HYDROXIDE GEL, DRIED [Concomitant]
     Indication: PRODUCT USED FOR UNKNOWN INDICATION
     Dosage: 1.2 G, DAILY
     Route: 065
  6. CYCLOPHOSPHAMIDE. [Interacting]
     Active Substance: CYCLOPHOSPHAMIDE
     Indication: BREAST CANCER RECURRENT
     Dosage: 100 MG, DAILY
     Route: 065
  7. PHENYTOIN. [Interacting]
     Active Substance: PHENYTOIN
     Indication: SEIZURE
     Dosage: 250 MG, SINGLE (ON THE DAY OF SURGERY)
     Route: 042
  8. PHENYTOIN. [Interacting]
     Active Substance: PHENYTOIN
     Dosage: 250 MG, SINGLE (LOADING DOSE)
     Route: 042
  9. ASPIRIN. [Concomitant]
     Active Substance: ASPIRIN
     Indication: PRODUCT USED FOR UNKNOWN INDICATION
     Dosage: 81 MG, DAILY
     Route: 065
  10. DICYCLOMINE                        /00068601/ [Concomitant]
     Active Substance: DICYCLOMINE HYDROCHLORIDE
     Indication: PRODUCT USED FOR UNKNOWN INDICATION
     Dosage: 15 MG, DAILY
     Route: 065

REACTIONS (3)
  - Anticonvulsant drug level above therapeutic [Recovered/Resolved]
  - Drug interaction [Recovered/Resolved]
  - Gait disturbance [Recovered/Resolved]
